FAERS Safety Report 4774780-X (Version None)
Quarter: 2005Q3

REPORT INFORMATION
  Report Type: 
  Country: None (occurrence: None)
  Receive Date: 20050914
  Receipt Date: 20050406
  Transmission Date: 20060218
  Serious: Yes (Death, Hospitalization)
  Sender: FDA-Public Use
  Company Number: 163-20785-05040110

PATIENT
  Age: 75 Year
  Sex: Male
  Weight: 84.369 kg

DRUGS (9)
  1. THALOMID [Suspect]
     Indication: METASTATIC MALIGNANT MELANOMA
     Dosage: 200 MG DAILY ORAL
     Route: 048
     Dates: start: 20041102, end: 20041105
  2. TEMODAR [Suspect]
     Indication: METASTATIC MALIGNANT MELANOMA
     Dosage: 300 MG DAILY ORAL
     Route: 048
     Dates: start: 20041026, end: 20041030
  3. GMCSF (GRANULOCYTE MACROPHAGE COLONY STIM FACTOR) [Suspect]
     Indication: METASTATIC MALIGNANT MELANOMA
     Dosage: 513 MG, DAILY, SUBCUTANEOUS
     Route: 058
     Dates: start: 20041031, end: 20041105
  4. COUMADIN [Concomitant]
  5. VASOTEC [Concomitant]
  6. ZOLOFT [Concomitant]
  7. HYDRALAZINE [Concomitant]
  8. SONATA [Concomitant]
  9. INDAPAMIDE [Concomitant]

REACTIONS (6)
  - ASPERGILLOSIS [None]
  - ASTHENIA [None]
  - DEATH [None]
  - DYSPNOEA [None]
  - PNEUMONIA [None]
  - RESPIRATORY FAILURE [None]
